FAERS Safety Report 23855709 (Version 1)
Quarter: 2024Q2

REPORT INFORMATION
  Report Type: Spontaneous
  Country: CN (occurrence: CN)
  Receive Date: 20240514
  Receipt Date: 20240514
  Transmission Date: 20240715
  Serious: Yes (Other)
  Sender: FDA-Public Use
  Company Number: CN-BEIGENE-BGN-2024-007052

PATIENT

DRUGS (4)
  1. TISLELIZUMAB [Suspect]
     Active Substance: TISLELIZUMAB
     Indication: Lung carcinoma cell type unspecified stage IV
     Dosage: 200 MILLIGRAM 1 CYCLE
     Dates: start: 20230518
  2. TISLELIZUMAB [Suspect]
     Active Substance: TISLELIZUMAB
     Dosage: UNK, Q3WK
     Dates: start: 20230709
  3. CATEQUENTINIB [Concomitant]
     Active Substance: CATEQUENTINIB
     Indication: Lung carcinoma cell type unspecified stage IV
     Dosage: UNK
     Route: 048
  4. GEMCITABINE [Concomitant]
     Active Substance: GEMCITABINE
     Indication: Lung carcinoma cell type unspecified stage IV
     Dosage: UNK, Q3WK
     Dates: start: 20230709

REACTIONS (3)
  - Hypothyroidism [Recovered/Resolved]
  - Pericardial effusion [Recovered/Resolved]
  - Blood creatine phosphokinase increased [Recovered/Resolved]

NARRATIVE: CASE EVENT DATE: 20230828
